FAERS Safety Report 15438350 (Version 1)
Quarter: 2018Q4

REPORT INFORMATION
  Report Type: Spontaneous
  Country: US (occurrence: US)
  Receive Date: 20180928
  Receipt Date: 20180928
  Transmission Date: 20190204
  Serious: No
  Sender: FDA-Public Use
  Company Number: US-BION-007061

PATIENT
  Age: 2 Year
  Sex: Male
  Weight: 13.61 kg

DRUGS (1)
  1. LOPERAMIDE 2 MG SOFTGEL 120CT [Suspect]
     Active Substance: LOPERAMIDE
     Dosage: STRENGTH: 2 MG?SWALLOWED ABOUT 4-5 SOFTGELS
     Route: 048
     Dates: start: 20180316, end: 20180316

REACTIONS (2)
  - Accidental exposure to product by child [Not Recovered/Not Resolved]
  - Accidental overdose [Not Recovered/Not Resolved]

NARRATIVE: CASE EVENT DATE: 20180316
